FAERS Safety Report 8887883 (Version 2)
Quarter: 2013Q1

REPORT INFORMATION
  Report Type: Spontaneous
  Country: US (occurrence: US)
  Receive Date: 20121106
  Receipt Date: 20130110
  Transmission Date: 20140127
  Serious: Yes (Hospitalization)
  Sender: FDA-Public Use
  Company Number: US-BIOGENIDEC-2012BI049425

PATIENT
  Age: 64 Year
  Sex: Male

DRUGS (15)
  1. TYSABRI [Suspect]
     Indication: MULTIPLE SCLEROSIS
     Route: 042
     Dates: start: 20110620, end: 20120928
  2. AVONEX [Concomitant]
     Indication: MULTIPLE SCLEROSIS
     Route: 030
  3. ACE INHIBITORS [Concomitant]
  4. EXFORGE [Concomitant]
  5. GLIPIZIDE [Concomitant]
  6. EXELON [Concomitant]
  7. PRILOSEC [Concomitant]
  8. LEVEMIR [Concomitant]
  9. HUMALOG [Concomitant]
  10. DIOVAN [Concomitant]
  11. COREG [Concomitant]
  12. AMLODIPINE [Concomitant]
  13. ZOFRAN [Concomitant]
  14. DETROL LA [Concomitant]
  15. CRESTOR [Concomitant]

REACTIONS (1)
  - Renal failure acute [Recovered/Resolved]
